FAERS Safety Report 16365886 (Version 1)
Quarter: 2019Q2

REPORT INFORMATION
  Report Type: Report from Study
  Country: CA (occurrence: CA)
  Receive Date: 20190529
  Receipt Date: 20190529
  Transmission Date: 20190711
  Serious: Yes (Other)
  Sender: FDA-Public Use
  Company Number: PHHY2014CA049932

PATIENT
  Age: 69 Year
  Sex: Female

DRUGS (7)
  1. SANDOSTATIN LAR DEPOT [Suspect]
     Active Substance: OCTREOTIDE ACETATE
     Indication: CARCINOID TUMOUR
     Dosage: 30 MG, QMO (EVERY 4 WEEKS)
     Route: 030
     Dates: start: 20140422, end: 20160811
  2. AFINITOR [Suspect]
     Active Substance: EVEROLIMUS
     Indication: PANCREATIC NEUROENDOCRINE TUMOUR
     Dosage: 10 MG, QD
     Route: 048
     Dates: start: 20161214, end: 20170425
  3. AFINITOR [Suspect]
     Active Substance: EVEROLIMUS
     Dosage: 10 MG, QOD
     Route: 048
     Dates: start: 201709
  4. AFINITOR [Suspect]
     Active Substance: EVEROLIMUS
     Dosage: ALTERNATING THE 5MG AND 10MG
     Route: 048
     Dates: start: 201801
  5. SANDOSTATIN LAR DEPOT [Suspect]
     Active Substance: OCTREOTIDE ACETATE
     Dosage: 60 MG, QMO (EVERY 4 WEEKS)
     Route: 030
     Dates: start: 20160908, end: 20161129
  6. AFINITOR [Suspect]
     Active Substance: EVEROLIMUS
     Dosage: 5 MG, QD
     Route: 048
     Dates: start: 20170505
  7. SANDOSTATIN [Suspect]
     Active Substance: OCTREOTIDE ACETATE
     Indication: CARCINOID TUMOUR
     Dosage: 100 UG, BID
     Route: 058
     Dates: start: 20140411, end: 20140418

REACTIONS (12)
  - Small intestine carcinoma [Unknown]
  - Cystitis [Recovered/Resolved]
  - Blood pressure increased [Unknown]
  - Hepatic lesion [Unknown]
  - Lung infection [Unknown]
  - Infrequent bowel movements [Recovering/Resolving]
  - Nasopharyngitis [Unknown]
  - Needle issue [Unknown]
  - Heart rate decreased [Unknown]
  - Full blood count increased [Unknown]
  - Pancreatic disorder [Unknown]
  - Renal disorder [Unknown]

NARRATIVE: CASE EVENT DATE: 20140422
